FAERS Safety Report 13313139 (Version 3)
Quarter: 2017Q1

REPORT INFORMATION
  Report Type: Spontaneous
  Country: DE (occurrence: DE)
  Receive Date: 20170309
  Receipt Date: 20170328
  Transmission Date: 20170428
  Serious: Yes (Hospitalization, Other)
  Sender: FDA-Public Use
  Company Number: DE-JNJFOC-20170307666

PATIENT
  Age: 77 Year
  Sex: Female
  Weight: 71.66 kg

DRUGS (6)
  1. SIMVASTATIN. [Concomitant]
     Active Substance: SIMVASTATIN
     Route: 065
  2. XARELTO [Suspect]
     Active Substance: RIVAROXABAN
     Indication: ATRIAL FIBRILLATION
     Route: 048
     Dates: start: 201703, end: 201703
  3. XARELTO [Suspect]
     Active Substance: RIVAROXABAN
     Indication: ATRIAL FIBRILLATION
     Route: 048
     Dates: start: 2013
  4. ZOPICLON [Concomitant]
     Active Substance: ZOPICLONE
     Dosage: QUARTER OR HALF A TABLET AS NEEDED (20 TABLETS IN 3 MONTHS) UNK
     Route: 065
  5. XARELTO [Suspect]
     Active Substance: RIVAROXABAN
     Indication: PRODUCT USED FOR UNKNOWN INDICATION
     Route: 048
     Dates: start: 2013
  6. XARELTO [Suspect]
     Active Substance: RIVAROXABAN
     Indication: PRODUCT USED FOR UNKNOWN INDICATION
     Route: 048
     Dates: start: 201703, end: 201703

REACTIONS (2)
  - Embolic cerebral infarction [Recovering/Resolving]
  - Renal infarct [Unknown]

NARRATIVE: CASE EVENT DATE: 20170218
